FAERS Safety Report 7346649-8 (Version None)
Quarter: 2011Q1

REPORT INFORMATION
  Report Type: 
  Country: None (occurrence: None)
  Receive Date: 20110311
  Receipt Date: 20110225
  Transmission Date: 20110831
  Serious: Yes (Hospitalization, Other)
  Sender: FDA-Public Use
  Company Number: JP-PFIZER INC-2011031745

PATIENT
  Age: 77 Year
  Sex: Female
  Weight: 40 kg

DRUGS (5)
  1. MUCOSTA [Concomitant]
     Dosage: 100 MG, A DAY
     Route: 048
  2. CELECOXIB [Concomitant]
     Dosage: 100 MG, A DAY
     Route: 048
  3. PREDONINE [Concomitant]
     Dosage: 5 MG, A DAY
     Route: 048
  4. RISEDRONATE SODIUM [Concomitant]
     Dosage: 17.5 MG, A DAY
     Route: 048
  5. AZULFIDINE [Suspect]
     Indication: RHEUMATOID ARTHRITIS
     Dosage: 500 MG, 1X/DAY
     Route: 048
     Dates: start: 20100802, end: 20100924

REACTIONS (3)
  - ARTHRALGIA [None]
  - AGRANULOCYTOSIS [None]
  - MOVEMENT DISORDER [None]
